FAERS Safety Report 8367213-8 (Version None)
Quarter: 2012Q2

REPORT INFORMATION
  Report Type: 
  Country: None (occurrence: None)
  Receive Date: 20120517
  Receipt Date: 20120511
  Transmission Date: 20120825
  Serious: Yes (Other)
  Sender: FDA-Public Use
  Company Number: PHHY2012JP040600

PATIENT
  Age: 62 Year
  Sex: Female

DRUGS (2)
  1. RIBAVIRIN [Suspect]
     Indication: HEPATITIS C
     Dosage: 600 MG, UNK
  2. PEGINTERFERON ALFA-2A [Suspect]
     Indication: HEPATITIS C
     Dosage: 80 UG/WEEKLY

REACTIONS (11)
  - DIABETIC KETOACIDOSIS [None]
  - HASHITOXICOSIS [None]
  - HYPOTHYROIDISM [None]
  - POLYDIPSIA [None]
  - TYPE 1 DIABETES MELLITUS [None]
  - PALPITATIONS [None]
  - WEIGHT DECREASED [None]
  - THIRST [None]
  - NAUSEA [None]
  - POLYURIA [None]
  - HYPERTHYROIDISM [None]
